FAERS Safety Report 5011118-7 (Version None)
Quarter: 2006Q2

REPORT INFORMATION
  Report Type: 
  Country: None (occurrence: None)
  Receive Date: 20060523
  Receipt Date: 20060510
  Transmission Date: 20061013
  Serious: Yes (Death, Hospitalization, Other)
  Sender: FDA-Public Use
  Company Number: 2006064710

PATIENT
  Age: 77 Year
  Sex: Female

DRUGS (20)
  1. SOLU-MEDROL [Suspect]
     Indication: ILL-DEFINED DISORDER
     Dosage: INTRAVENOUS
     Route: 042
     Dates: start: 20050819, end: 20051001
  2. CYCLOPHOSPHAMIDE [Suspect]
     Indication: ILL-DEFINED DISORDER
     Dosage: INTRAVENOUS
     Route: 042
     Dates: start: 20050827, end: 20051001
  3. CIPROFLOXACIN HYDROCHLORIDE [Concomitant]
  4. MEROPEN          (MEROPENEM) [Concomitant]
  5. IMMUNE GLOBULIN INTRAVENOUS (HUMAN) [Concomitant]
  6. PRODIF (FOSFLUCONAZOLE) [Concomitant]
  7. HEPARIN SODIUM [Concomitant]
  8. RIFADIN [Concomitant]
  9. SULFAMETHOXAZOLE + TRIMETHOPRIM [Concomitant]
  10. FAMOTIDINE [Concomitant]
  11. LACTATED RINGER'S [Concomitant]
  12. DEXTROSE IN LACTATED RINGER'S (CALCIUM CHLORIDE DIHYDRATE, GLUCOSE, PO [Concomitant]
  13. SOLDEM 3A           (CARBOHYDRATES NOS, POTASSIUM CHLORIDE, SODIUM CHL [Concomitant]
  14. AMINOFLUID                  (AMINO ACIDS NOS, ELECTROLYTES NOS, GLUCOS [Concomitant]
  15. AMLODIPINE [Concomitant]
  16. MUCOSTA                 (REBAMIPIDE) [Concomitant]
  17. MAGNESIUM OXIDE [Concomitant]
  18. URSO 250 [Concomitant]
  19. ACECOL       (TEMOCAPRIL HYDROCHLORIDE) [Concomitant]
  20. LAXOBERON (SODIUM PICOSULFATE) [Concomitant]

REACTIONS (7)
  - BRONCHOPULMONARY ASPERGILLOSIS [None]
  - CONDITION AGGRAVATED [None]
  - HEPATIC FUNCTION ABNORMAL [None]
  - HYPERGLYCAEMIA [None]
  - HYPOALBUMINAEMIA [None]
  - RESPIRATORY FAILURE [None]
  - STOMATITIS [None]
